FAERS Safety Report 8918952 (Version 1)
Quarter: 2012Q4

REPORT INFORMATION
  Report Type: 
  Country: US (occurrence: US)
  Receive Date: 20121121
  Receipt Date: 20121121
  Transmission Date: 20130627
  Serious: No
  Sender: FDA-Public Use
  Company Number: US-ASTRAZENECA-2012SE22979

PATIENT
  Age: 62 Year
  Sex: Male

DRUGS (2)
  1. NEXIUM [Suspect]
     Route: 048
  2. NEXIUM [Suspect]
     Dosage: generic
     Route: 048

REACTIONS (9)
  - Dyspepsia [Unknown]
  - Diabetes mellitus [Unknown]
  - Post-traumatic stress disorder [Unknown]
  - Nightmare [Unknown]
  - Gastrooesophageal reflux disease [Unknown]
  - Dry mouth [Unknown]
  - Malaise [Unknown]
  - Intentional drug misuse [Unknown]
  - Drug ineffective [Unknown]
